FAERS Safety Report 10187192 (Version 4)
Quarter: 2014Q3

REPORT INFORMATION
  Report Type: Spontaneous
  Country: RU (occurrence: RU)
  Receive Date: 20140522
  Receipt Date: 20140721
  Transmission Date: 20150326
  Serious: Yes (Death, Hospitalization)
  Sender: FDA-Public Use
  Company Number: RU-US-EMD SERONO, INC.-7285769

PATIENT
  Age: 26 Year
  Sex: Female

DRUGS (8)
  1. OVITRELLE [Suspect]
     Active Substance: CHORIOGONADOTROPIN ALFA
     Indication: OVULATION INDUCTION
     Dates: start: 20140203, end: 20140203
  2. CETROTIDE [Suspect]
     Active Substance: CETRORELIX ACETATE
     Indication: OVULATION INDUCTION
     Route: 058
     Dates: start: 20140130, end: 20140202
  3. CRINONE [Concomitant]
     Active Substance: PROGESTERONE
     Indication: PRODUCT USED FOR UNKNOWN INDICATION
     Dates: start: 20140205
  4. PERGOVERIS [Suspect]
     Active Substance: FOLLITROPIN\LUTROPIN ALFA
     Indication: OVULATION INDUCTION
     Dosage: 150 IU FSH/75 IU LH DAILY
     Route: 058
     Dates: start: 20140124, end: 20140202
  5. THROMBO ASS [Concomitant]
     Active Substance: ASPIRIN
     Indication: PRODUCT USED FOR UNKNOWN INDICATION
     Dates: start: 20140124, end: 20140215
  6. VITRUM [Concomitant]
     Indication: PRODUCT USED FOR UNKNOWN INDICATION
     Dates: start: 20140124
  7. DUFASTON [Concomitant]
     Indication: PRODUCT USED FOR UNKNOWN INDICATION
  8. NADROPARIN CALCIUM [Concomitant]
     Active Substance: NADROPARIN CALCIUM
     Indication: PRODUCT USED FOR UNKNOWN INDICATION
     Dates: start: 20140215

REACTIONS (3)
  - Haemothorax [Fatal]
  - Acute respiratory distress syndrome [Fatal]
  - Ovarian hyperstimulation syndrome [Unknown]

NARRATIVE: CASE EVENT DATE: 2014
